FAERS Safety Report 10505232 (Version 1)
Quarter: 2014Q4

REPORT INFORMATION
  Report Type: Spontaneous
  Country: DE (occurrence: DE)
  Receive Date: 20141008
  Receipt Date: 20141008
  Transmission Date: 20150528
  Serious: Yes (Hospitalization)
  Sender: FDA-Public Use
  Company Number: DE-BANPHARM-20143102

PATIENT
  Age: 15 Year
  Sex: Female

DRUGS (2)
  1. IBUPROFEN UNKNOWN PRODUCT [Suspect]
     Active Substance: IBUPROFEN
     Indication: PAIN
     Dosage: 3-4 DF, 600 MG,
     Route: 048
     Dates: start: 201405, end: 201409
  2. METAMIZOL [Suspect]
     Active Substance: METAMIZOLE SODIUM
     Indication: PAIN
     Dosage: 3-4 DF, 30 GTT DROPS, QD,
     Route: 048
     Dates: start: 201405, end: 201409

REACTIONS (1)
  - Agranulocytosis [Not Recovered/Not Resolved]

NARRATIVE: CASE EVENT DATE: 20140922
